FAERS Safety Report 18400778 (Version 2)
Quarter: 2020Q4

REPORT INFORMATION
  Report Type: Spontaneous
  Country: US (occurrence: US)
  Receive Date: 20201019
  Receipt Date: 20201021
  Transmission Date: 20210114
  Serious: Yes (Life-Threatening, Hospitalization)
  Sender: FDA-Public Use
  Company Number: US-TEVA-2020-US-1839688

PATIENT
  Age: 41 Year
  Sex: Female

DRUGS (22)
  1. MANNITOL. [Suspect]
     Active Substance: MANNITOL
     Indication: INTRACRANIAL PRESSURE INCREASED
     Route: 065
  2. HEPARIN [Suspect]
     Active Substance: HEPARIN SODIUM
     Indication: ANTICOAGULANT THERAPY
     Dosage: 1200 UNITS/HOUR
     Route: 041
     Dates: start: 20181109, end: 20181110
  3. HEPARIN [Suspect]
     Active Substance: HEPARIN SODIUM
     Dosage: HEPARIN INFUSION INCREASED TO 1050 UNITS/HOUR
     Route: 041
     Dates: start: 20181112
  4. HEPARIN [Suspect]
     Active Substance: HEPARIN SODIUM
     Dosage: HEPARIN INFUSION RESTARTED AT 1600 UNITS/HOUR AND DECREASED TO 1450 UNITS/HOUR AND CONTINUED AT S...
     Route: 041
     Dates: start: 20181114
  5. HEPARIN [Suspect]
     Active Substance: HEPARIN SODIUM
     Dosage: HEPARIN INFUSION INCREASED TO 1600 UNITS/HOUR
     Route: 041
     Dates: start: 20181117, end: 20181118
  6. HEPARIN [Suspect]
     Active Substance: HEPARIN SODIUM
     Dosage: HEPARIN INFUSION RESTARTED AT 800 UNITS/HOUR
     Route: 041
     Dates: start: 20181118
  7. ALTEPLASE. [Suspect]
     Active Substance: ALTEPLASE
     Indication: ANTICOAGULANT THERAPY
     Dosage: AS A CONTINUOUS INFUSION VIA INTRA-SINUS CATHETER AT A RATE OF 1 MG/HOUR FOR APPROXIMATELY 72 HOURS
     Route: 050
  8. SODIUM [Suspect]
     Active Substance: SODIUM
     Indication: BRAIN OEDEMA
  9. DROSPIRENONE [Suspect]
     Active Substance: DROSPIRENONE
     Indication: ORAL CONTRACEPTION
     Route: 065
  10. HEPARIN [Suspect]
     Active Substance: HEPARIN SODIUM
     Dosage: HEPARIN INFUSION DECREASED TO 800 UNITS/HOUR; SINGLE DOSE GIVEN
     Route: 041
     Dates: start: 20181112, end: 20181112
  11. SODIUM CHLORIDE. [Suspect]
     Active Substance: SODIUM CHLORIDE
     Indication: INTRACRANIAL PRESSURE INCREASED
     Route: 065
  12. MANNITOL. [Suspect]
     Active Substance: MANNITOL
     Indication: BRAIN OEDEMA
  13. HEPARIN [Suspect]
     Active Substance: HEPARIN SODIUM
     Dosage: HEPARIN INFUSION RESTARTED AT 1200 UNITS/HOUR
     Route: 041
     Dates: start: 20181110, end: 20181111
  14. HEPARIN [Suspect]
     Active Substance: HEPARIN SODIUM
     Dosage: HEPARIN INFUSION INCREASED TO 1450 UNITS/HOUR
     Route: 041
     Dates: start: 20181113, end: 20181114
  15. ETHINYLESTRADIOL [Suspect]
     Active Substance: ETHINYL ESTRADIOL
     Indication: ORAL CONTRACEPTION
     Route: 065
  16. SODIUM CHLORIDE. [Suspect]
     Active Substance: SODIUM CHLORIDE
     Indication: BRAIN OEDEMA
  17. SODIUM [Suspect]
     Active Substance: SODIUM
     Indication: INTRACRANIAL PRESSURE INCREASED
     Route: 065
  18. HEPARIN [Suspect]
     Active Substance: HEPARIN SODIUM
     Dosage: HEPARIN INFUSION INCREASED TO 1300 UNITS/HOUR
     Route: 041
     Dates: start: 20181113, end: 20181113
  19. NORMAL SALINE [Concomitant]
     Active Substance: SODIUM CHLORIDE
     Indication: VEHICLE SOLUTION USE
     Dosage: AS A CONTINUOUS INFUSION
     Route: 050
  20. ACETAZOLAMIDE. [Suspect]
     Active Substance: ACETAZOLAMIDE
     Indication: INTRACRANIAL PRESSURE INCREASED
     Route: 065
  21. ACETAZOLAMIDE. [Suspect]
     Active Substance: ACETAZOLAMIDE
     Indication: BRAIN OEDEMA
  22. ALTEPLASE. [Suspect]
     Active Substance: ALTEPLASE
     Dosage: RECEIVED 1 DOSE OF INTRA-VENTRICULAR ALTEPLASE 1 MG PER DAY FOR A TOTAL OF 3 DOSES
     Route: 050

REACTIONS (9)
  - Bleeding time prolonged [Unknown]
  - Cerebral venous sinus thrombosis [Unknown]
  - Noninfective encephalitis [Unknown]
  - Intraventricular haemorrhage [Recovering/Resolving]
  - Drug ineffective [Unknown]
  - Cerebral infarction [Unknown]
  - Brain oedema [Unknown]
  - Hypercoagulation [Unknown]
  - Hydrocephalus [Unknown]
